FAERS Safety Report 22326167 (Version 1)
Quarter: 2023Q2

REPORT INFORMATION
  Report Type: Spontaneous
  Country: None (occurrence: FR)
  Receive Date: 20230516
  Receipt Date: 20230516
  Transmission Date: 20230722
  Serious: Yes (Other)
  Sender: FDA-Public Use
  Company Number: FR-B.Braun Medical Inc.-2141538

PATIENT
  Age: 71 Year
  Sex: Male
  Weight: 83 kg

DRUGS (15)
  1. ACETAMINOPHEN [Suspect]
     Active Substance: ACETAMINOPHEN
     Indication: Pain
     Route: 042
  2. DAPTOMYCIN [Suspect]
     Active Substance: DAPTOMYCIN
  3. TAZOBACTAM SODIUM [Suspect]
     Active Substance: TAZOBACTAM SODIUM
  4. PIPERACILLIN SODIUM [Suspect]
     Active Substance: PIPERACILLIN SODIUM
  5. INSULIN GLARGINE [Concomitant]
     Active Substance: INSULIN GLARGINE
  6. LEVOTHYROXINE [Concomitant]
     Active Substance: LEVOTHYROXINE
  7. PHLOROGLUCINOL [Concomitant]
     Active Substance: PHLOROGLUCINOL
  8. ASPIRIN\CLOPIDOGREL [Concomitant]
     Active Substance: ASPIRIN\CLOPIDOGREL
  9. INSULIN NOS [Concomitant]
     Active Substance: INSULIN NOS
  10. ENOXAPARIN SODIUM [Concomitant]
     Active Substance: ENOXAPARIN SODIUM
  11. AMIODARONE [Concomitant]
     Active Substance: AMIODARONE
  12. FUROSEMIDE [Concomitant]
     Active Substance: FUROSEMIDE
  13. TRULICITY [Concomitant]
     Active Substance: DULAGLUTIDE
  14. TAMSULOSIN HYDROCHLORIDE [Concomitant]
     Active Substance: TAMSULOSIN HYDROCHLORIDE
  15. LIPTRUZET [Concomitant]
     Active Substance: ATORVASTATIN CALCIUM\EZETIMIBE

REACTIONS (2)
  - Hepatic cytolysis [Recovering/Resolving]
  - Cholestasis [Recovering/Resolving]
